FAERS Safety Report 7204465-1 (Version None)
Quarter: 2010Q4

REPORT INFORMATION
  Report Type: 
  Country: None (occurrence: None)
  Receive Date: 20101230
  Receipt Date: 20101222
  Transmission Date: 20110411
  Serious: Yes (Hospitalization, Other)
  Sender: FDA-Public Use
  Company Number: JP-BAYER-201015620BYL

PATIENT
  Sex: Female
  Weight: 36 kg

DRUGS (1)
  1. NEXAVAR [Suspect]
     Indication: HEPATIC NEOPLASM MALIGNANT
     Dosage: DAILY DOSE 200 MG
     Route: 048
     Dates: start: 20101022, end: 20101028

REACTIONS (2)
  - BLOOD BILIRUBIN INCREASED [None]
  - HEPATIC FAILURE [None]
